FAERS Safety Report 26097511 (Version 2)
Quarter: 2025Q4

REPORT INFORMATION
  Report Type: Spontaneous
  Country: CH (occurrence: CH)
  Receive Date: 20251127
  Receipt Date: 20251203
  Transmission Date: 20260117
  Serious: Yes (Life-Threatening, Other)
  Sender: PFIZER
  Company Number: CH-PFIZER INC-PV202500138546

PATIENT
  Age: 12 Year
  Sex: Female

DRUGS (2)
  1. SIROLIMUS [Suspect]
     Active Substance: SIROLIMUS
     Indication: Central nervous system neoplasm
     Dosage: UNK
  2. SIROLIMUS [Suspect]
     Active Substance: SIROLIMUS
     Indication: Arteriovenous malformation

REACTIONS (2)
  - PTEN hamartoma tumour syndrome [Recovered/Resolved]
  - Off label use [Unknown]
